FAERS Safety Report 5062022-X (Version None)
Quarter: 2006Q3

REPORT INFORMATION
  Report Type: 
  Country: None (occurrence: None)
  Receive Date: 20060720
  Receipt Date: 20060720
  Transmission Date: 20061208
  Serious: Yes (Other)
  Sender: FDA-Public Use
  Company Number: None

PATIENT
  Age: 58 Year
  Sex: Male

DRUGS (25)
  1. AMBIEN [Suspect]
     Indication: INSOMNIA
     Dosage: 10 MG PO X 1
     Route: 048
     Dates: start: 20060404
  2. AMPICILLIN [Concomitant]
  3. BISACODYL [Concomitant]
  4. CEFOTAXIME [Concomitant]
  5. D5W/NS [Concomitant]
  6. PREDNISONE [Concomitant]
  7. SOD. BIPHOSPHATE [Concomitant]
  8. SOD. PHOSPHATE [Concomitant]
  9. SMX/TRIMETHOPRIN [Concomitant]
  10. TACROLIMUS [Concomitant]
  11. VALGANCICLOVIR HCL [Concomitant]
  12. INSULIN ASPARTE [Concomitant]
  13. REGULAR INSULIN [Concomitant]
  14. LEVOTHYROXINE SODIUM [Concomitant]
  15. MAGNESIUM SULFATE [Concomitant]
  16. MICONAZOLE [Concomitant]
  17. MORPHINE [Concomitant]
  18. MYCOPHENABLE [Concomitant]
  19. MYCOPHENOBATE [Concomitant]
  20. NYSTATIN [Concomitant]
  21. OMEPRAZOLE [Concomitant]
  22. ONDANSETRON HCL [Concomitant]
  23. OXYCODONE HCL [Concomitant]
  24. POTASSIUM CHLORIDE [Concomitant]
  25. CITALOPRAM [Concomitant]

REACTIONS (4)
  - ABNORMAL BEHAVIOUR [None]
  - AGGRESSION [None]
  - AMNESIA [None]
  - CONFUSIONAL STATE [None]
